FAERS Safety Report 6092148-3 (Version None)
Quarter: 2009Q1

REPORT INFORMATION
  Report Type: 
  Country: None (occurrence: None)
  Receive Date: 20090223
  Receipt Date: 20090213
  Transmission Date: 20090719
  Serious: Yes (Disabling)
  Sender: FDA-Public Use
  Company Number: 117238

PATIENT
  Sex: Female

DRUGS (1)
  1. NASAL SPRAY XMOIST LIQ/           PERIGO [Suspect]
     Dosage: ONE TIME/INTRANASAL
     Route: 045
     Dates: start: 20081128, end: 20081128

REACTIONS (3)
  - AGEUSIA [None]
  - ANOSMIA [None]
  - BURNING SENSATION [None]
